FAERS Safety Report 5448163-3 (Version None)
Quarter: 2007Q3

REPORT INFORMATION
  Report Type: 
  Country: None (occurrence: None)
  Receive Date: 20070905
  Receipt Date: 20070824
  Transmission Date: 20080115
  Serious: Yes (Hospitalization)
  Sender: FDA-Public Use
  Company Number: 2007-163365-NL

PATIENT
  Sex: Male

DRUGS (2)
  1. MIRTAZAPINE [Suspect]
     Indication: SLEEP DISORDER
     Dosage: DF
  2. PAROXETINE [Suspect]
     Indication: DEPRESSION
     Dosage: DF

REACTIONS (2)
  - ANAPHYLACTIC REACTION [None]
  - SLEEP DISORDER [None]
